FAERS Safety Report 11913646 (Version 4)
Quarter: 2016Q2

REPORT INFORMATION
  Report Type: Spontaneous
  Country: US (occurrence: US)
  Receive Date: 20160113
  Receipt Date: 20160411
  Transmission Date: 20160815
  Serious: Yes (Other)
  Sender: FDA-Public Use
  Company Number: US-PFIZER INC-2015398642

PATIENT
  Age: 68 Year
  Sex: Female
  Weight: 86.17 kg

DRUGS (16)
  1. IBRANCE [Suspect]
     Active Substance: PALBOCICLIB
     Dosage: 1 DF, CYCLIC (1 CAPSULE EVERY DAY FOR 21 DAYS OFF 7 DAYS)
     Route: 048
     Dates: start: 201511
  2. VITAMIN D3 [Concomitant]
     Active Substance: CHOLECALCIFEROL
     Dosage: UNK
     Dates: start: 2011
  3. FLORAJEN [Concomitant]
     Dosage: UNK
     Dates: start: 2010
  4. GAVISCON [Concomitant]
     Active Substance: ALUMINUM HYDROXIDE\MAGNESIUM CARBONATE
     Dosage: UNK
     Dates: start: 2015
  5. IBRANCE [Suspect]
     Active Substance: PALBOCICLIB
     Dosage: UNK
  6. VITAMIN B COMPLEX [Concomitant]
     Active Substance: CYANOCOBALAMIN\DEXPANTHENOL\NIACINAMIDE\PYRIDOXINE HYDROCHLORIDE\RIBOFLAVIN 5^-PHOSPHATE SODIUM\THIAMINE HYDROCHLORIDE\VITAMIN B COMPLEX
     Dosage: UNK
  7. IBRANCE [Suspect]
     Active Substance: PALBOCICLIB
     Indication: BREAST CANCER METASTATIC
     Dosage: UNK
  8. IBRANCE [Suspect]
     Active Substance: PALBOCICLIB
     Dosage: 125 MG, 1X/DAY
     Dates: start: 20151107, end: 20160118
  9. IBUPROFEN. [Concomitant]
     Active Substance: IBUPROFEN
     Dosage: 800 MG, 1X/DAY
     Dates: start: 2014
  10. LISINOPRIL. [Concomitant]
     Active Substance: LISINOPRIL
     Dosage: UNK
  11. ALLOPURINOL. [Concomitant]
     Active Substance: ALLOPURINOL
     Dosage: UNK
  12. LOSARTAN AND HYDROCHLOROTHIAZIDE [Concomitant]
     Active Substance: HYDROCHLOROTHIAZIDE\LOSARTAN POTASSIUM
     Indication: PAIN
     Dosage: 50/12.5
  13. PRAVASTATIN SODIUM. [Concomitant]
     Active Substance: PRAVASTATIN SODIUM
     Dosage: 40 MG, UNK
  14. CLARITIN [Concomitant]
     Active Substance: LORATADINE
     Dosage: UNK
  15. ANASTROZOLE. [Suspect]
     Active Substance: ANASTROZOLE
     Indication: BLOOD OESTROGEN
     Dosage: 1 MG, 1X/DAY
     Route: 048
     Dates: start: 20151107
  16. VITAMIN K2 [Concomitant]
     Active Substance: MENAQUINONE 6
     Dosage: UNK
     Dates: start: 201511

REACTIONS (4)
  - Hepatic enzyme increased [Recovered/Resolved]
  - Neuropathy peripheral [Not Recovered/Not Resolved]
  - Product use issue [Unknown]
  - Fatigue [Not Recovered/Not Resolved]

NARRATIVE: CASE EVENT DATE: 201511
